FAERS Safety Report 15930890 (Version 2)
Quarter: 2020Q3

REPORT INFORMATION
  Report Type: Spontaneous
  Country: CZ (occurrence: CZ)
  Receive Date: 20190207
  Receipt Date: 20200821
  Transmission Date: 20201102
  Serious: Yes (Hospitalization, Other)
  Sender: FDA-Public Use
  Company Number: CZ-AUROBINDO-AUR-APL-2019-004435

PATIENT
  Age: 14 Year
  Sex: Female

DRUGS (10)
  1. PARACETAMOL 500MG [Suspect]
     Active Substance: ACETAMINOPHEN
     Indication: EAR PAIN
  2. IBUPROFEN 400MG [Suspect]
     Active Substance: IBUPROFEN
     Indication: PYREXIA
     Dosage: 400 MILLIGRAM, 400 MILLIGRAM, ALTERNATING EVERY 4 HOURS
     Route: 065
  3. IBUPROFEN 400MG [Suspect]
     Active Substance: IBUPROFEN
     Indication: EAR PAIN
  4. IBUPROFEN 400MG [Suspect]
     Active Substance: IBUPROFEN
     Indication: ANALGESIC THERAPY
  5. PARACETAMOL 500MG [Suspect]
     Active Substance: ACETAMINOPHEN
     Indication: HEADACHE
  6. IBUPROFEN 400MG [Suspect]
     Active Substance: IBUPROFEN
     Indication: HEADACHE
  7. PARACETAMOL 500MG [Suspect]
     Active Substance: ACETAMINOPHEN
     Indication: PYREXIA
     Dosage: 500 MILLIGRAM, 500 MILLIGRAM, ALTERNATING EVERY 4 HOURS
     Route: 065
  8. PARACETAMOL 500MG [Suspect]
     Active Substance: ACETAMINOPHEN
     Indication: ANALGESIC THERAPY
  9. PARACETAMOL 500MG [Suspect]
     Active Substance: ACETAMINOPHEN
     Indication: ANTIPYRESIS
  10. IBUPROFEN 400MG [Suspect]
     Active Substance: IBUPROFEN
     Indication: ANTIPYRESIS

REACTIONS (12)
  - Upper respiratory tract inflammation [Unknown]
  - C-reactive protein increased [Recovered/Resolved]
  - Dehydration [Recovered/Resolved]
  - Liver disorder [Recovering/Resolving]
  - Proteinuria [Recovered/Resolved]
  - Pyrexia [Recovered/Resolved]
  - Drug ineffective [Unknown]
  - Microalbuminuria [Not Recovered/Not Resolved]
  - Inflammation [Recovering/Resolving]
  - Hepatic enzyme increased [Recovering/Resolving]
  - Blood creatinine increased [Unknown]
  - Acute kidney injury [Recovered/Resolved]
